FAERS Safety Report 20214859 (Version 2)
Quarter: 2022Q4

REPORT INFORMATION
  Report Type: Report from Study
  Country: US (occurrence: US)
  Receive Date: 20211222
  Receipt Date: 20221215
  Transmission Date: 20230113
  Serious: No
  Sender: FDA-Public Use
  Company Number: US-NOVARTISTESTPH-NVSC2021US292624

PATIENT
  Age: 52 Year
  Sex: Female

DRUGS (1)
  1. KESIMPTA [Suspect]
     Active Substance: OFATUMUMAB
     Indication: Product used for unknown indication
     Dosage: 20 MG, QMO
     Route: 058
     Dates: start: 20211027

REACTIONS (3)
  - Eye pain [Not Recovered/Not Resolved]
  - Hypoaesthesia [Not Recovered/Not Resolved]
  - Neuralgia [Not Recovered/Not Resolved]

NARRATIVE: CASE EVENT DATE: 20211201
